FAERS Safety Report 21861499 (Version 2)
Quarter: 2023Q1

REPORT INFORMATION
  Report Type: Report from Study
  Country: DE (occurrence: DE)
  Receive Date: 20230113
  Receipt Date: 20230123
  Transmission Date: 20230417
  Serious: Yes (Hospitalization)
  Sender: FDA-Public Use
  Company Number: DE-SA-SAC20221116000236

PATIENT
  Age: 76 Year
  Sex: Female

DRUGS (61)
  1. DEXAMETHASONE [Suspect]
     Active Substance: DEXAMETHASONE
     Indication: Plasma cell myeloma refractory
     Dosage: 40 MG, BIW
     Route: 065
     Dates: start: 20220207, end: 20220223
  2. DEXAMETHASONE [Suspect]
     Active Substance: DEXAMETHASONE
     Dosage: 40 MG, BIW
     Route: 065
     Dates: start: 20220111, end: 20220124
  3. DEXAMETHASONE [Suspect]
     Active Substance: DEXAMETHASONE
     Dosage: 40 MG, QD
     Route: 065
     Dates: start: 20220927, end: 20221011
  4. DEXAMETHASONE [Suspect]
     Active Substance: DEXAMETHASONE
     Dosage: 40 MG, QD
     Route: 065
     Dates: start: 20220601, end: 20220620
  5. DEXAMETHASONE [Suspect]
     Active Substance: DEXAMETHASONE
     Dosage: 100 MG, BIW
     Route: 065
     Dates: start: 20210427, end: 20210518
  6. DEXAMETHASONE [Suspect]
     Active Substance: DEXAMETHASONE
     Dosage: 40 MG, BIW
     Route: 065
     Dates: start: 20210629, end: 20210713
  7. DEXAMETHASONE [Suspect]
     Active Substance: DEXAMETHASONE
     Dosage: 40 MG, OTHER (D1)
     Route: 065
     Dates: start: 20220504, end: 20220518
  8. DEXAMETHASONE [Suspect]
     Active Substance: DEXAMETHASONE
     Dosage: 40 MG, QD
     Route: 065
     Dates: start: 20220803, end: 20220817
  9. DEXAMETHASONE [Suspect]
     Active Substance: DEXAMETHASONE
     Dosage: 40 MG, BIW
     Route: 065
     Dates: start: 20210601, end: 20210615
  10. DEXAMETHASONE [Suspect]
     Active Substance: DEXAMETHASONE
     Dosage: 40 MG, QD
     Route: 065
     Dates: start: 20220629, end: 20220711
  11. DEXAMETHASONE [Suspect]
     Active Substance: DEXAMETHASONE
     Dosage: 40 MG, BIW
     Route: 065
     Dates: start: 20210922, end: 20211005
  12. DEXAMETHASONE [Suspect]
     Active Substance: DEXAMETHASONE
     Dosage: 40 MG, BIW
     Route: 065
     Dates: start: 20220406, end: 20220420
  13. DEXAMETHASONE [Suspect]
     Active Substance: DEXAMETHASONE
     Dosage: 40 MG, QD
     Route: 065
     Dates: start: 20220831, end: 20220914
  14. DEXAMETHASONE [Suspect]
     Active Substance: DEXAMETHASONE
     Dosage: 40 MG, BIW
     Route: 065
     Dates: start: 20210727, end: 20210810
  15. DEXAMETHASONE [Suspect]
     Active Substance: DEXAMETHASONE
     Dosage: 40 MG, BIW
     Route: 065
     Dates: start: 20210824, end: 20210907
  16. DEXAMETHASONE [Suspect]
     Active Substance: DEXAMETHASONE
     Dosage: 40 MG, BIW
     Route: 065
     Dates: start: 20220309, end: 20220323
  17. DEXAMETHASONE [Suspect]
     Active Substance: DEXAMETHASONE
     Dosage: 40 MG, BIW
     Route: 065
     Dates: start: 20211214, end: 20211228
  18. DEXAMETHASONE [Suspect]
     Active Substance: DEXAMETHASONE
     Dosage: 40 MG, BIW
     Route: 065
     Dates: start: 20211117, end: 20211130
  19. DEXAMETHASONE [Suspect]
     Active Substance: DEXAMETHASONE
     Dosage: 40 MG, BIW
     Route: 065
     Dates: start: 20211019, end: 20211103
  20. ISATUXIMAB [Suspect]
     Active Substance: ISATUXIMAB
     Indication: Plasma cell myeloma refractory
     Dosage: 653 MG, QD
     Route: 065
     Dates: start: 20220803, end: 20220817
  21. ISATUXIMAB [Suspect]
     Active Substance: ISATUXIMAB
     Dosage: 650 MG, BIW
     Route: 065
     Dates: start: 20211117, end: 20211130
  22. ISATUXIMAB [Suspect]
     Active Substance: ISATUXIMAB
     Dosage: 650 MG, BIW
     Route: 065
     Dates: start: 20211019, end: 20211103
  23. ISATUXIMAB [Suspect]
     Active Substance: ISATUXIMAB
     Dosage: 650 MG, BIW
     Route: 065
     Dates: start: 20220601, end: 20220615
  24. ISATUXIMAB [Suspect]
     Active Substance: ISATUXIMAB
     Dosage: 653 MG, BIW
     Route: 065
     Dates: start: 20210921, end: 20211005
  25. ISATUXIMAB [Suspect]
     Active Substance: ISATUXIMAB
     Dosage: 650 MG, BIW
     Route: 065
     Dates: start: 20220406, end: 20220420
  26. ISATUXIMAB [Suspect]
     Active Substance: ISATUXIMAB
     Dosage: 650 MG, BIW
     Route: 065
     Dates: start: 20220111, end: 20220124
  27. ISATUXIMAB [Suspect]
     Active Substance: ISATUXIMAB
     Dosage: 650 MG, BIW
     Route: 065
     Dates: start: 20210629, end: 20210713
  28. ISATUXIMAB [Suspect]
     Active Substance: ISATUXIMAB
     Dosage: 650 MG, BIW
     Route: 065
     Dates: start: 20220207, end: 20220223
  29. ISATUXIMAB [Suspect]
     Active Substance: ISATUXIMAB
     Dosage: 650 MG, BIW
     Route: 065
     Dates: start: 20210824, end: 20210907
  30. ISATUXIMAB [Suspect]
     Active Substance: ISATUXIMAB
     Dosage: 650 MG, BIW
     Route: 065
     Dates: start: 20211214, end: 20211228
  31. ISATUXIMAB [Suspect]
     Active Substance: ISATUXIMAB
     Dosage: 650 MG, BIW
     Route: 065
     Dates: start: 20210727, end: 20210810
  32. ISATUXIMAB [Suspect]
     Active Substance: ISATUXIMAB
     Dosage: 653 MG, BIW
     Route: 065
     Dates: start: 20220927, end: 20221011
  33. ISATUXIMAB [Suspect]
     Active Substance: ISATUXIMAB
     Dosage: 650 MG, BIW
     Route: 065
     Dates: start: 20220309, end: 20220323
  34. ISATUXIMAB [Suspect]
     Active Substance: ISATUXIMAB
     Dosage: 650 MG, BIW
     Route: 065
     Dates: start: 20210601, end: 20210615
  35. ISATUXIMAB [Suspect]
     Active Substance: ISATUXIMAB
     Dosage: 653 MG, BIW
     Route: 065
     Dates: start: 20220629, end: 20220720
  36. ISATUXIMAB [Suspect]
     Active Substance: ISATUXIMAB
     Dosage: 653 MG, BIW
     Route: 065
     Dates: start: 20220504, end: 20220518
  37. ISATUXIMAB [Suspect]
     Active Substance: ISATUXIMAB
     Dosage: 653 MG, QD
     Route: 065
     Dates: start: 20220831, end: 20220914
  38. ISATUXIMAB [Suspect]
     Active Substance: ISATUXIMAB
     Dosage: 650 MG, QW
     Route: 065
     Dates: start: 20210427, end: 20210517
  39. ISATUXIMAB [Suspect]
     Active Substance: ISATUXIMAB
     Dosage: 650 MG, QW
     Route: 065
     Dates: start: 20210518, end: 20210518
  40. POMALIDOMIDE [Suspect]
     Active Substance: POMALIDOMIDE
     Indication: Plasma cell myeloma refractory
     Dosage: 4 MG, QD
     Route: 065
     Dates: start: 20220629, end: 20220720
  41. POMALIDOMIDE [Suspect]
     Active Substance: POMALIDOMIDE
     Dosage: 4 MG, QD
     Route: 065
     Dates: start: 20211117, end: 20211130
  42. POMALIDOMIDE [Suspect]
     Active Substance: POMALIDOMIDE
     Dosage: 4 MG, QD
     Route: 065
     Dates: start: 20220831, end: 20220922
  43. POMALIDOMIDE [Suspect]
     Active Substance: POMALIDOMIDE
     Dosage: 4 MG, QD
     Route: 065
     Dates: start: 20220309, end: 20220323
  44. POMALIDOMIDE [Suspect]
     Active Substance: POMALIDOMIDE
     Dosage: 4 MG, QD
     Route: 065
     Dates: start: 20211019, end: 20211103
  45. POMALIDOMIDE [Suspect]
     Active Substance: POMALIDOMIDE
     Dosage: 4 MG, D1-14, Q3 W
     Route: 065
     Dates: start: 20211214, end: 20211228
  46. POMALIDOMIDE [Suspect]
     Active Substance: POMALIDOMIDE
     Dosage: 4 MG, QD
     Route: 065
     Dates: start: 20210824, end: 20210907
  47. POMALIDOMIDE [Suspect]
     Active Substance: POMALIDOMIDE
     Dosage: 4 MG, D1-14, Q3 W
     Route: 065
     Dates: start: 20220111, end: 20220124
  48. POMALIDOMIDE [Suspect]
     Active Substance: POMALIDOMIDE
     Dosage: 4 MG, QD
     Route: 065
     Dates: start: 20220207, end: 20220223
  49. POMALIDOMIDE [Suspect]
     Active Substance: POMALIDOMIDE
     Dosage: 4 MG, QD
     Route: 065
     Dates: start: 20210921, end: 20211005
  50. POMALIDOMIDE [Suspect]
     Active Substance: POMALIDOMIDE
     Dosage: 4 MG, QD
     Route: 065
     Dates: start: 20220601, end: 20220620
  51. POMALIDOMIDE [Suspect]
     Active Substance: POMALIDOMIDE
     Dosage: 4 MG, QD
     Route: 065
     Dates: start: 20210427, end: 20210518
  52. POMALIDOMIDE [Suspect]
     Active Substance: POMALIDOMIDE
     Dosage: 4 MG, QD
     Route: 065
     Dates: start: 20220927, end: 20221020
  53. POMALIDOMIDE [Suspect]
     Active Substance: POMALIDOMIDE
     Dosage: 4 MG, QD
     Route: 065
     Dates: start: 20210629, end: 20210712
  54. POMALIDOMIDE [Suspect]
     Active Substance: POMALIDOMIDE
     Dosage: 4 MG, D1-21
     Route: 065
     Dates: start: 20220504, end: 20220524
  55. POMALIDOMIDE [Suspect]
     Active Substance: POMALIDOMIDE
     Dosage: 4 MG, QD
     Route: 065
     Dates: start: 20210601, end: 20210614
  56. POMALIDOMIDE [Suspect]
     Active Substance: POMALIDOMIDE
     Dosage: 4 MG, BIW
     Route: 065
     Dates: start: 20220406, end: 20220420
  57. POMALIDOMIDE [Suspect]
     Active Substance: POMALIDOMIDE
     Dosage: 4 MG, QD
     Route: 065
     Dates: start: 20220803, end: 20220824
  58. OMEPRAZOLE [Concomitant]
     Active Substance: OMEPRAZOLE
     Indication: Dyspepsia
     Dosage: UNK UNK, PRN; FREQUENCY - AS REQUIRED.
     Route: 065
     Dates: start: 20210427
  59. LOPERAMIDE [Concomitant]
     Active Substance: LOPERAMIDE
     Indication: Prophylaxis
     Dosage: UNK
     Dates: start: 20210518
  60. ACETAMINOPHEN [Concomitant]
     Active Substance: ACETAMINOPHEN
     Indication: Premedication
     Dosage: EVERY CYCLE
     Dates: start: 20210427
  61. IBUPROFEN [Concomitant]
     Active Substance: IBUPROFEN
     Indication: Osteolysis
     Dosage: UNK
     Route: 065
     Dates: start: 20210601

REACTIONS (1)
  - Infection [Not Recovered/Not Resolved]

NARRATIVE: CASE EVENT DATE: 20221107
